FAERS Safety Report 4847312-5 (Version None)
Quarter: 2005Q4

REPORT INFORMATION
  Report Type: 
  Country: None (occurrence: None)
  Receive Date: 20051205
  Receipt Date: 20051205
  Transmission Date: 20060501
  Serious: Yes (Other)
  Sender: FDA-Public Use
  Company Number: None

PATIENT
  Age: 63 Year
  Sex: Female
  Weight: 81.6475 kg

DRUGS (1)
  1. CELEXA [Suspect]
     Indication: DEPRESSION
     Dosage: 20 MG    2 @ DAY
     Dates: start: 20050610, end: 20050920

REACTIONS (5)
  - AGGRESSION [None]
  - AMNESIA [None]
  - CONDITION AGGRAVATED [None]
  - DELUSION [None]
  - PARANOIA [None]
